FAERS Safety Report 20619809 (Version 1)
Quarter: 2022Q1

REPORT INFORMATION
  Report Type: Spontaneous
  Country: None (occurrence: US)
  Receive Date: 20220322
  Receipt Date: 20220322
  Transmission Date: 20220423
  Serious: No
  Sender: FDA-Public Use
  Company Number: US-Mission Pharmacal Company-2126992

PATIENT
  Age: 13 Year
  Sex: Male

DRUGS (1)
  1. THIOLA EC [Suspect]
     Active Substance: TIOPRONIN
     Indication: Cystinuria
     Route: 048
     Dates: start: 20220108

REACTIONS (5)
  - Pain [Unknown]
  - Dyschezia [Unknown]
  - Renal pain [Unknown]
  - Drug ineffective [Unknown]
  - Nausea [Unknown]
